FAERS Safety Report 18762164 (Version 1)
Quarter: 2021Q1

REPORT INFORMATION
  Report Type: Spontaneous
  Country: US (occurrence: US)
  Receive Date: 20210119
  Receipt Date: 20210119
  Transmission Date: 20210419
  Serious: Yes (Other)
  Sender: FDA-Public Use
  Company Number: None

PATIENT
  Age: 10 Year
  Sex: Male
  Weight: 40.82 kg

DRUGS (1)
  1. FOCALIN XR [Suspect]
     Active Substance: DEXMETHYLPHENIDATE HYDROCHLORIDE
     Indication: EMOTIONAL DISORDER
     Dosage: ?          QUANTITY:1 TABLET;?
     Route: 048
     Dates: start: 20191010, end: 20191014

REACTIONS (4)
  - Irritability [None]
  - Crying [None]
  - Emotional disorder [None]
  - Fatigue [None]

NARRATIVE: CASE EVENT DATE: 20191014
